FAERS Safety Report 21962680 (Version 2)
Quarter: 2024Q3

REPORT INFORMATION
  Report Type: Spontaneous
  Country: JP (occurrence: JP)
  Receive Date: 20230207
  Receipt Date: 20240807
  Transmission Date: 20241017
  Serious: Yes (Death, Other)
  Sender: RECORDATI
  Company Number: JP-RECORDATI-2023000134

PATIENT

DRUGS (1)
  1. ISTURISA [Suspect]
     Active Substance: OSILODROSTAT PHOSPHATE
     Indication: Cortisol decreased
     Dosage: 3 MILLIGRAM, BID
     Route: 048
     Dates: start: 20220110, end: 202212

REACTIONS (2)
  - Metastases to liver [Fatal]
  - Disease progression [Fatal]

NARRATIVE: CASE EVENT DATE: 20220101
